FAERS Safety Report 6310662-X (Version None)
Quarter: 2009Q3

REPORT INFORMATION
  Report Type: 
  Country: None (occurrence: None)
  Receive Date: 20090814
  Receipt Date: 20090811
  Transmission Date: 20100115
  Serious: Yes (Hospitalization)
  Sender: FDA-Public Use
  Company Number: US-GENENTECH-288536

PATIENT
  Sex: Male
  Weight: 82.2 kg

DRUGS (3)
  1. BEVACIZUMAB [Suspect]
     Indication: NON-SMALL CELL LUNG CANCER
     Dosage: 15 MG/KG, Q3W
     Route: 042
     Dates: start: 20090505, end: 20090706
  2. CARBOPLATIN [Concomitant]
     Indication: CHEMOTHERAPY
     Dosage: 6 AUC, Q3W
     Route: 042
     Dates: start: 20090505
  3. PEMETREXED [Concomitant]
     Indication: CHEMOTHERAPY
     Dosage: 500 MG, Q3W
     Route: 042
     Dates: start: 20090526

REACTIONS (1)
  - ELECTROCARDIOGRAM ABNORMAL [None]
